FAERS Safety Report 10030083 (Version 1)
Quarter: 2014Q1

REPORT INFORMATION
  Report Type: Spontaneous
  Country: US (occurrence: US)
  Receive Date: 20140323
  Receipt Date: 20140323
  Transmission Date: 20141002
  Serious: No
  Sender: FDA-Public Use
  Company Number: US-ALLERGAN-1303418US

PATIENT
  Age: 54 Year
  Sex: Female

DRUGS (2)
  1. LATISSE 0.03% [Suspect]
     Indication: GROWTH OF EYELASHES
     Dosage: UNK UNK, QHS
     Route: 061
  2. PERMANENT MAKE -UP [Concomitant]
     Dosage: UNK UNK, QHS

REACTIONS (6)
  - Conjunctivitis [Unknown]
  - Incorrect dose administered [Unknown]
  - Wrong technique in drug usage process [Unknown]
  - Eye irritation [Unknown]
  - Scleral hyperaemia [Unknown]
  - Eye discharge [Unknown]
